FAERS Safety Report 22201896 (Version 3)
Quarter: 2023Q2

REPORT INFORMATION
  Report Type: Report from Study
  Country: CO (occurrence: CO)
  Receive Date: 20230412
  Receipt Date: 20230629
  Transmission Date: 20230721
  Serious: Yes (Hospitalization)
  Sender: FDA-Public Use
  Company Number: CO-002147023-NVSC2023CO035513

PATIENT
  Sex: Female

DRUGS (4)
  1. KISQALI [Suspect]
     Active Substance: RIBOCICLIB
     Indication: Hormone receptor positive HER2 negative breast cancer
     Dosage: 600 MG, QD
     Route: 048
  2. KISQALI [Suspect]
     Active Substance: RIBOCICLIB
     Dosage: UNK
     Route: 048
  3. FEMARA [Suspect]
     Active Substance: LETROZOLE
     Indication: Breast cancer
     Dosage: 2.5 MG, QD
     Route: 048
  4. FEMARA [Suspect]
     Active Substance: LETROZOLE
     Dosage: UNK
     Route: 048

REACTIONS (7)
  - Brain neoplasm [Unknown]
  - Malaise [Unknown]
  - Depressed mood [Unknown]
  - Headache [Unknown]
  - Fatigue [Unknown]
  - Vomiting [Unknown]
  - Product dose omission issue [Unknown]
